FAERS Safety Report 4492507-6 (Version None)
Quarter: 2004Q4

REPORT INFORMATION
  Report Type: 
  Country: None (occurrence: None)
  Receive Date: 20041029
  Receipt Date: 20041013
  Transmission Date: 20050328
  Serious: Yes (Hospitalization)
  Sender: FDA-Public Use
  Company Number: DSA_25174_2004

PATIENT
  Age: 56 Year
  Sex: Female

DRUGS (25)
  1. ENALAPRIL MALEATE [Suspect]
     Dosage: 5 MG QD PO
     Route: 048
     Dates: start: 20040321, end: 20040325
  2. ENAHEXAL [Suspect]
     Dosage: 5 MG QD PO
     Route: 048
     Dates: start: 20040326, end: 20040328
  3. TOREM    /GFR/ [Suspect]
     Dosage: 20 MG Q DAY PO
     Route: 048
     Dates: start: 20040321, end: 20040324
  4. TOREM     /GFR/ [Suspect]
     Dosage: 10 MG QD PO
     Route: 048
     Dates: start: 20040325, end: 20040325
  5. TOREM    /GFR/ [Suspect]
     Dosage: 10 MG BID PO
     Route: 048
     Dates: start: 20040326, end: 20040327
  6. NOVALGIN      /SCH/ [Suspect]
     Dosage: 20 GTT Q DAY PO
     Route: 048
     Dates: start: 20040322, end: 20040324
  7. ASPIRIN [Concomitant]
  8. SORIS ^GOEDECKE^ [Concomitant]
  9. CONCOR [Concomitant]
  10. LOPIRIN COR^BRISTOL-MYERS SQUIBB^ [Concomitant]
  11. FRAGMIN [Concomitant]
  12. NEXIUM [Concomitant]
  13. LOCOL [Concomitant]
  14. DISALUNIL [Concomitant]
  15. LORZAAR [Concomitant]
  16. BELOC-ZOK [Concomitant]
  17. CORVATON ^AVENTIS PHARMA^ [Concomitant]
  18. ZYPREXA [Concomitant]
  19. PANTOZOL [Concomitant]
  20. ZOCOR ^DIECKMAN^ [Concomitant]
  21. ISOPTIN [Concomitant]
  22. AQUAPHOR [Concomitant]
  23. KALINOR [Concomitant]
  24. ACETYLCYSTEINE [Concomitant]
  25. NOVODIGAL [Concomitant]

REACTIONS (1)
  - AUTOIMMUNE THROMBOCYTOPENIA [None]
